FAERS Safety Report 23447362 (Version 1)
Quarter: 2024Q1

REPORT INFORMATION
  Report Type: Report from Study
  Country: US (occurrence: None)
  Receive Date: 20240126
  Receipt Date: 20240126
  Transmission Date: 20240410
  Serious: Yes (Death)
  Sender: FDA-Public Use
  Company Number: 2024A020082

PATIENT
  Sex: Male
  Weight: 87.1 kg

DRUGS (26)
  1. CALQUENCE [Suspect]
     Active Substance: ACALABRUTINIB
     Indication: Chronic lymphocytic leukaemia
     Route: 048
     Dates: start: 20230823
  2. ASPIRIN [Concomitant]
     Active Substance: ASPIRIN
  3. ATORVASTATIN [Concomitant]
     Active Substance: ATORVASTATIN
  4. CARBIDOPA\LEVODOPA [Concomitant]
     Active Substance: CARBIDOPA\LEVODOPA
  5. CLONAZEPAM [Concomitant]
     Active Substance: CLONAZEPAM
  6. COLACE [Concomitant]
     Active Substance: DOCUSATE SODIUM
  7. GABAPENTIN [Concomitant]
     Active Substance: GABAPENTIN
  8. GLYBURIDE [Concomitant]
     Active Substance: GLYBURIDE
  9. LANTUS [Concomitant]
     Active Substance: INSULIN GLARGINE
  10. HUMALOG [Concomitant]
     Active Substance: INSULIN LISPRO
  11. ISOSORBIDE [Concomitant]
     Active Substance: ISOSORBIDE
  12. LEVOTHYROXINE [Concomitant]
     Active Substance: LEVOTHYROXINE\LEVOTHYROXINE SODIUM
  13. LOSARTAN [Concomitant]
     Active Substance: LOSARTAN
  14. METOPROLOL [Concomitant]
     Active Substance: METOPROLOL
  15. VISION [Concomitant]
  16. OMEPRAZOLE [Concomitant]
     Active Substance: OMEPRAZOLE
  17. ONGENTYS [Concomitant]
     Active Substance: OPICAPONE
  18. TACROLIMUS [Concomitant]
     Active Substance: TACROLIMUS
  19. MENS 50+ MULTIVITAMIN [Concomitant]
  20. ALLEGRA ALLERGY [Concomitant]
     Active Substance: FEXOFENADINE HYDROCHLORIDE
  21. TYLENOL 8 [Concomitant]
  22. ONDANSETRON [Concomitant]
     Active Substance: ONDANSETRON
  23. MIRALAX [Concomitant]
     Active Substance: POLYETHYLENE GLYCOL 3350
  24. BISACODYL [Concomitant]
     Active Substance: BISACODYL
  25. TUMS EX-LAX [Concomitant]
  26. GAS-EX [Concomitant]

REACTIONS (1)
  - Death [Fatal]
